FAERS Safety Report 4322665-5 (Version None)
Quarter: 2004Q1

REPORT INFORMATION
  Report Type: 
  Country: None (occurrence: None)
  Receive Date: 20040324
  Receipt Date: 20040204
  Transmission Date: 20041129
  Serious: No
  Sender: FDA-Public Use
  Company Number: US-BRISTOL-MYERS SQUIBB COMPANY-12495800

PATIENT
  Age: 39 Year
  Sex: Female

DRUGS (2)
  1. REYATAZ [Suspect]
     Indication: HIV INFECTION
     Route: 048
     Dates: start: 20030930
  2. ZERIT [Suspect]
     Indication: HIV INFECTION
     Dates: start: 20030930

REACTIONS (4)
  - BLOOD CREATINE PHOSPHOKINASE INCREASED [None]
  - FATIGUE [None]
  - MUSCULAR WEAKNESS [None]
  - MYOGLOBIN BLOOD INCREASED [None]
